FAERS Safety Report 10332297 (Version 3)
Quarter: 2014Q3

REPORT INFORMATION
  Report Type: Spontaneous
  Country: JP (occurrence: JP)
  Receive Date: 20140722
  Receipt Date: 20140904
  Transmission Date: 20150326
  Serious: Yes (Other)
  Sender: FDA-Public Use
  Company Number: JP-SA-2014SA094107

PATIENT
  Age: 71 Year
  Sex: Male
  Weight: 46 kg

DRUGS (13)
  1. METHYLPREDNISOLONE SODIUM SUCCINATE. [Concomitant]
     Active Substance: METHYLPREDNISOLONE SODIUM SUCCINATE
     Dates: start: 20130524, end: 20130527
  2. 5-FU [Concomitant]
     Active Substance: FLUOROURACIL
     Indication: COLON CANCER
     Dosage: BOLUS
     Dates: start: 20130415
  3. AVASTIN [Concomitant]
     Active Substance: BEVACIZUMAB
     Indication: COLON CANCER
     Dates: start: 20130415, end: 20131126
  4. RANITIDINE HYDROCHLORIDE. [Concomitant]
     Active Substance: RANITIDINE HYDROCHLORIDE
     Dates: start: 20130415, end: 20130415
  5. MEROPENEM. [Concomitant]
     Active Substance: MEROPENEM
     Dates: start: 20130520, end: 20130528
  6. ELPLAT [Suspect]
     Active Substance: OXALIPLATIN
     Indication: COLON CANCER
     Dosage: INFUSION
     Route: 041
     Dates: start: 20130415, end: 20130415
  7. ALOXI [Concomitant]
     Active Substance: PALONOSETRON HYDROCHLORIDE
     Dates: start: 20130415, end: 20131126
  8. DEXAMETHASONE SODIUM PHOSPHATE [Concomitant]
     Active Substance: DEXAMETHASONE SODIUM PHOSPHATE
     Dates: start: 20130415, end: 20130415
  9. ELPLAT [Suspect]
     Active Substance: OXALIPLATIN
     Indication: COLON CANCER
     Dosage: INFUSION
     Route: 041
     Dates: start: 20131126, end: 20131126
  10. CALCIUM LEVOFOLINATE [Concomitant]
     Active Substance: LEVOLEUCOVORIN CALCIUM
     Indication: COLON CANCER
     Dosage: INFUSION
     Route: 042
     Dates: start: 20130415, end: 20131126
  11. 5-FU [Concomitant]
     Active Substance: FLUOROURACIL
     Indication: COLON CANCER
     Dosage: CONTINUOUS INFUSION ON DAY 1 AND 2
     Dates: end: 20131126
  12. PREDNISOLONE. [Concomitant]
     Active Substance: PREDNISOLONE
     Dates: start: 20130520, end: 20130731
  13. CALCIUM BROMIDE/DIPHENHYDRAMINE HYDROCHLORIDE [Concomitant]
     Dates: start: 20130415, end: 20131126

REACTIONS (1)
  - Eosinophilic pneumonia chronic [Recovered/Resolved]

NARRATIVE: CASE EVENT DATE: 20130508
